FAERS Safety Report 17041957 (Version 9)
Quarter: 2021Q1

REPORT INFORMATION
  Report Type: Report from Study
  Country: CN (occurrence: CN)
  Receive Date: 20191118
  Receipt Date: 20210222
  Transmission Date: 20210419
  Serious: Yes (Other)
  Sender: FDA-Public Use
  Company Number: NVSC2019CN017077

PATIENT
  Age: 73 Year
  Sex: Female

DRUGS (27)
  1. COMPOUND AMINO ACID (9AA) [Concomitant]
     Indication: SUPPLEMENTATION THERAPY
     Dosage: 500 ML
     Route: 042
     Dates: start: 20190911, end: 20190911
  2. NITROGLYCERIN. [Concomitant]
     Active Substance: NITROGLYCERIN
     Indication: CARDIAC FAILURE
     Dosage: 80 MG
     Route: 042
     Dates: start: 20190911, end: 20190911
  3. DIGOXIN. [Concomitant]
     Active Substance: DIGOXIN
     Indication: CARDIAC FAILURE
     Dosage: 0.125 MG
     Route: 048
     Dates: start: 20190123, end: 20190915
  4. CREATINE PHOSPHATE SODIUM [Concomitant]
     Active Substance: CREATINE
     Indication: CARDIAC FAILURE
     Dosage: 1 G
     Route: 042
     Dates: start: 20190910, end: 20191010
  5. LEVAMLODIPINE BESYLATE [Concomitant]
     Active Substance: LEVAMLODIPINE BESYLATE
     Indication: PRODUCT USED FOR UNKNOWN INDICATION
     Dosage: 5 MG
     Route: 048
     Dates: start: 20191002, end: 20191002
  6. MUPIROCIN. [Concomitant]
     Active Substance: MUPIROCIN
     Indication: PROPHYLAXIS
     Dosage: 5 G
     Route: 061
     Dates: start: 20191021, end: 20191129
  7. BISOPROLOL FUMARATE. [Concomitant]
     Active Substance: BISOPROLOL FUMARATE
     Indication: CARDIAC FAILURE
     Dosage: 1.25 MG
     Route: 048
     Dates: start: 20190123, end: 20191129
  8. SPIRONOLACTONE. [Concomitant]
     Active Substance: SPIRONOLACTONE
     Indication: CARDIAC FAILURE
     Dosage: 20 MG
     Route: 048
     Dates: start: 20190123, end: 20191129
  9. CEFOPERAZONE SODIUM AND TAZOBACTAM SODIUM [Concomitant]
     Active Substance: CEFOPERAZONE\TAZOBACTAM SODIUM
     Indication: PRODUCT USED FOR UNKNOWN INDICATION
     Dosage: 2 G
     Route: 042
     Dates: start: 20190915, end: 20190927
  10. NITROGLYCERIN. [Concomitant]
     Active Substance: NITROGLYCERIN
     Dosage: 20 MG
     Route: 042
     Dates: start: 20191111, end: 20191129
  11. POTASSIUM CHLORIDE. [Concomitant]
     Active Substance: POTASSIUM CHLORIDE
     Dosage: 1 G
     Route: 048
     Dates: start: 20190930, end: 20190930
  12. LEVAMLODIPINE BESYLATE [Concomitant]
     Active Substance: LEVAMLODIPINE BESYLATE
     Dosage: 5 MG
     Route: 048
     Dates: start: 20191020
  13. NITROGLYCERIN. [Concomitant]
     Active Substance: NITROGLYCERIN
     Dosage: 10 MG
     Route: 042
     Dates: start: 20190928, end: 20191001
  14. RECOMBINANT HUMAN BRAIN NATRIURETIC PEPTIDE [Concomitant]
     Indication: CARDIAC FAILURE
     Dosage: 1 DF
     Route: 048
     Dates: start: 20190911, end: 20190914
  15. POTASSIUM CHLORIDE. [Concomitant]
     Active Substance: POTASSIUM CHLORIDE
     Dosage: 1 G
     Route: 048
     Dates: start: 20191002, end: 20191002
  16. CALAMINE + MENTHOL [Concomitant]
     Indication: PRURITUS
     Dosage: 15 ML
     Route: 061
     Dates: start: 20191030, end: 20191129
  17. ENTRESTO [Suspect]
     Active Substance: SACUBITRIL\VALSARTAN
     Dosage: 100 MG
     Route: 048
     Dates: start: 20190729, end: 20191129
  18. COMPOUND AMINO ACID (9AA) [Concomitant]
     Indication: CARDIAC FAILURE
     Dosage: 1 G
     Route: 042
     Dates: start: 20190910, end: 20191010
  19. MORPHINE HYDROCHLORIDE [Concomitant]
     Active Substance: MORPHINE HYDROCHLORIDE
     Indication: CARDIAC FAILURE
     Dosage: 10 MG
     Route: 042
     Dates: start: 20190911, end: 20190911
  20. RISPERIDONE. [Concomitant]
     Active Substance: RISPERIDONE
     Indication: ANXIETY
     Dosage: 1 MG
     Route: 048
     Dates: start: 20190722, end: 20191129
  21. CALAMINE + MENTHOL [Concomitant]
     Indication: RASH
     Dosage: 10 ML
     Route: 061
     Dates: start: 20190928, end: 20191010
  22. ACARBOSE. [Concomitant]
     Active Substance: ACARBOSE
     Indication: PRE-EXISTING DISEASE
     Dosage: 50 MG
     Route: 048
     Dates: start: 20190722, end: 20191112
  23. FUROSEMIDE. [Concomitant]
     Active Substance: FUROSEMIDE
     Indication: CARDIAC FAILURE
     Dosage: 20 MG
     Route: 048
     Dates: start: 20190910, end: 20190915
  24. POTASSIUM CHLORIDE. [Concomitant]
     Active Substance: POTASSIUM CHLORIDE
     Indication: ELECTROLYTE SUBSTITUTION THERAPY
     Dosage: 0.5 UNK
     Route: 048
     Dates: start: 20190915, end: 20190917
  25. ENTRESTO [Suspect]
     Active Substance: SACUBITRIL\VALSARTAN
     Indication: CARDIAC FAILURE CHRONIC
     Dosage: 50 MG
     Route: 048
     Dates: start: 20190724, end: 20190728
  26. GLIMEPIRIDE. [Concomitant]
     Active Substance: GLIMEPIRIDE
     Indication: PRODUCT USED FOR UNKNOWN INDICATION
     Dosage: 2 MG
     Route: 048
     Dates: start: 20191114, end: 20191129
  27. POTASSIUM ASPARTATE [Concomitant]
     Active Substance: POTASSIUM ASPARTATE
     Indication: ELECTROLYTE SUBSTITUTION THERAPY
     Dosage: 10 ML
     Route: 042
     Dates: start: 20190926, end: 20190930

REACTIONS (11)
  - Malnutrition [Recovered/Resolved]
  - Hypertension [Recovered/Resolved]
  - Marasmus [Recovered/Resolved]
  - Atrial fibrillation [Recovered/Resolved]
  - Hypoproteinaemia [Recovered/Resolved]
  - Hypokalaemia [Recovered/Resolved]
  - Folliculitis [Recovered/Resolved]
  - Urinary tract infection [Recovered/Resolved]
  - Weight decreased [Recovered/Resolved]
  - Decubitus ulcer [Recovered/Resolved]
  - Oedema peripheral [Recovered/Resolved]

NARRATIVE: CASE EVENT DATE: 20190902
